FAERS Safety Report 7037310-8 (Version None)
Quarter: 2010Q4

REPORT INFORMATION
  Report Type: 
  Country: None (occurrence: None)
  Receive Date: 20101011
  Receipt Date: 20101001
  Transmission Date: 20110411
  Serious: Yes (Other)
  Sender: FDA-Public Use
  Company Number: BR-SANOFI-AVENTIS-2010SA059383

PATIENT
  Age: 43 Year
  Sex: Male
  Weight: 100 kg

DRUGS (2)
  1. ALLEGRA D 24 HOUR [Suspect]
     Indication: RHINITIS
     Route: 048
     Dates: start: 20100928
  2. VIAGRA [Suspect]
     Dates: start: 20101001

REACTIONS (7)
  - DERMATITIS ALLERGIC [None]
  - DYSPNOEA [None]
  - DYSURIA [None]
  - MIGRAINE [None]
  - NERVOUSNESS [None]
  - PENILE PAIN [None]
  - PRIAPISM [None]
